FAERS Safety Report 17289827 (Version 1)
Quarter: 2020Q1

REPORT INFORMATION
  Report Type: Spontaneous
  Country: US (occurrence: US)
  Receive Date: 20200120
  Receipt Date: 20200120
  Transmission Date: 20200409
  Serious: Yes (Hospitalization, Other)
  Sender: FDA-Public Use
  Company Number: US-PURDUE-GBR-2020-0074430

PATIENT
  Age: 33 Year
  Sex: Female

DRUGS (1)
  1. MORPHINE SULFATE. [Suspect]
     Active Substance: MORPHINE SULFATE
     Indication: BACK PAIN
     Dosage: UNK
     Route: 065

REACTIONS (12)
  - Acute kidney injury [Unknown]
  - Metabolic acidosis [Unknown]
  - Rhabdomyolysis [Unknown]
  - Soft tissue injury [Recovered/Resolved with Sequelae]
  - Blister [Unknown]
  - Compartment syndrome [Recovered/Resolved with Sequelae]
  - Fall [Unknown]
  - Toxicity to various agents [Unknown]
  - Sinus tachycardia [Unknown]
  - Renal tubular necrosis [Unknown]
  - Erythema [Unknown]
  - Overdose [Unknown]
